FAERS Safety Report 5015045-0 (Version None)
Quarter: 2006Q2

REPORT INFORMATION
  Report Type: 
  Country: None (occurrence: None)
  Receive Date: 20060530
  Receipt Date: 20060517
  Transmission Date: 20061013
  Serious: Yes (Other)
  Sender: FDA-Public Use
  Company Number: 225337

PATIENT
  Sex: Male

DRUGS (4)
  1. MABTHERA           (RITUXIMAB) [Suspect]
     Dosage: 700 MG,
     Dates: start: 20051102
  2. CYCLOPHOSPHAMIDE [Concomitant]
  3. ONCOVIN [Concomitant]
  4. PREDNISONE TAB [Concomitant]

REACTIONS (2)
  - OPTIC NERVE INFARCTION [None]
  - VISUAL FIELD DEFECT [None]
